APPROVED DRUG PRODUCT: BUPIVACAINE HYDROCHLORIDE PRESERVATIVE FREE
Active Ingredient: BUPIVACAINE HYDROCHLORIDE
Strength: 0.25%
Dosage Form/Route: INJECTABLE;INJECTION
Application: A091487 | Product #002 | TE Code: AP
Applicant: ONESOURCE SPECIALTY PTE LTD
Approved: Oct 18, 2011 | RLD: No | RS: No | Type: RX